FAERS Safety Report 19074691 (Version 1)
Quarter: 2021Q1

REPORT INFORMATION
  Report Type: Spontaneous
  Country: US (occurrence: US)
  Receive Date: 20210330
  Receipt Date: 20210330
  Transmission Date: 20210420
  Serious: No
  Sender: FDA-Public Use
  Company Number: US-ROCHE-2698280

PATIENT
  Sex: Male
  Weight: 83.54 kg

DRUGS (6)
  1. POTASSIUM [Concomitant]
     Active Substance: POTASSIUM
     Dosage: ONGOING:UNKNOWN
     Route: 048
     Dates: start: 20191101
  2. TRELEGY ELLIPTA [Concomitant]
     Active Substance: FLUTICASONE FUROATE\UMECLIDINIUM BROMIDE\VILANTEROL TRIFENATATE
     Dosage: ONGOING:UNKNOWN
     Route: 045
     Dates: start: 20191101
  3. ERIVEDGE [Suspect]
     Active Substance: VISMODEGIB
     Indication: BASAL CELL CARCINOMA
     Route: 048
     Dates: start: 20191104
  4. ATORVASTATIN [Concomitant]
     Active Substance: ATORVASTATIN
     Dosage: ONGOING:UNKNOWN
     Route: 048
     Dates: start: 20191101
  5. ASPIRIN. [Concomitant]
     Active Substance: ASPIRIN
     Dosage: ONGOING: UNKNOWN
     Route: 048
     Dates: start: 20191101
  6. LISINOPRIL. [Concomitant]
     Active Substance: LISINOPRIL
     Dosage: ONGOING:UNKNOWN
     Route: 048
     Dates: start: 20191101

REACTIONS (5)
  - Rash [Unknown]
  - Diarrhoea [Unknown]
  - Weight decreased [Unknown]
  - Fatigue [Unknown]
  - Abdominal pain upper [Unknown]
